FAERS Safety Report 5423115-8 (Version None)
Quarter: 2007Q3

REPORT INFORMATION
  Report Type: 
  Country: None (occurrence: None)
  Receive Date: 20070821
  Receipt Date: 20070806
  Transmission Date: 20080115
  Serious: Yes (Disabling)
  Sender: FDA-Public Use
  Company Number: 8025987

PATIENT
  Age: 41 Year
  Sex: Female
  Weight: 43 kg

DRUGS (1)
  1. LEVETIRACETAM [Suspect]
     Indication: EPILEPSY
     Dosage: 250 MG / D PO
     Route: 048
     Dates: start: 20070404

REACTIONS (2)
  - MYALGIA [None]
  - MYOPATHY [None]
